FAERS Safety Report 7759042-0 (Version None)
Quarter: 2011Q3

REPORT INFORMATION
  Report Type: 
  Country: None (occurrence: None)
  Receive Date: 20110919
  Receipt Date: 20110823
  Transmission Date: 20111222
  Serious: No
  Sender: FDA-Public Use
  Company Number: US-ROXANE LABORATORIES, INC.-2011-RO-01242RO

PATIENT
  Sex: Male

DRUGS (1)
  1. VALACYCLOVIR HYDROCHLORIDE [Suspect]

REACTIONS (4)
  - FEELING ABNORMAL [None]
  - HERPES ZOSTER [None]
  - HEADACHE [None]
  - FATIGUE [None]
